FAERS Safety Report 5347606-3 (Version None)
Quarter: 2007Q2

REPORT INFORMATION
  Report Type: 
  Country: None (occurrence: None)
  Receive Date: 20070604
  Receipt Date: 20070604
  Transmission Date: 20071010
  Serious: Yes (Other)
  Sender: FDA-Public Use
  Company Number: None

PATIENT
  Age: 37 Year
  Sex: Female
  Weight: 79.3795 kg

DRUGS (1)
  1. ZICAM MATRIZZ INITIATIVES INC [Suspect]
     Indication: NASOPHARYNGITIS
     Dosage: 1-2 SPRAYS IN NOSTLE 1 TIME NASAL
     Route: 045
     Dates: start: 20070531, end: 20070531

REACTIONS (5)
  - AGEUSIA [None]
  - DYSGEUSIA [None]
  - NASAL DISCOMFORT [None]
  - PAROSMIA [None]
  - RHINALGIA [None]
